FAERS Safety Report 9476748 (Version 2)
Quarter: 2013Q3

REPORT INFORMATION
  Report Type: Spontaneous
  Country: US (occurrence: US)
  Receive Date: 20130826
  Receipt Date: 20130826
  Transmission Date: 20140515
  Serious: No
  Sender: FDA-Public Use
  Company Number: US-BRISTOL-MYERS SQUIBB COMPANY-18856336

PATIENT
  Age: 66 Year
  Sex: Female

DRUGS (7)
  1. KENALOG-40 INJ [Suspect]
     Indication: ARTHRALGIA
     Route: 014
     Dates: start: 20130221, end: 20130221
  2. BUPIVACAINE [Suspect]
  3. SYNTHROID [Concomitant]
  4. KLOR-CON M [Concomitant]
  5. CHLORTHALIDONE [Concomitant]
  6. WELCHOL [Concomitant]
  7. XANAX [Concomitant]

REACTIONS (6)
  - Heart rate increased [Unknown]
  - Headache [Unknown]
  - Skin discolouration [Unknown]
  - C-reactive protein increased [Unknown]
  - Blood glucose increased [Unknown]
  - Blood pressure increased [Unknown]
